FAERS Safety Report 6130324-1 (Version None)
Quarter: 2009Q1

REPORT INFORMATION
  Report Type: 
  Country: None (occurrence: None)
  Receive Date: 20090324
  Receipt Date: 20090310
  Transmission Date: 20090719
  Serious: Yes (Hospitalization)
  Sender: FDA-Public Use
  Company Number: MX-GENENTECH-278539

PATIENT
  Sex: Male

DRUGS (15)
  1. BLINDED BEVACIZUMAB [Suspect]
     Indication: NON-HODGKIN'S LYMPHOMA
     Dosage: 15 MG/KG, Q3W
     Route: 042
     Dates: start: 20080922
  2. CYCLOPHOSPHAMIDE [Suspect]
     Indication: NON-HODGKIN'S LYMPHOMA
     Dosage: 15 MG/KG, Q3W
     Route: 042
     Dates: start: 20080922
  3. DOXORUBICIN HCL [Suspect]
     Indication: NON-HODGKIN'S LYMPHOMA
     Dosage: 15 MG/KG, Q3W
     Route: 042
     Dates: start: 20080922
  4. BLINDED PLACEBO [Suspect]
     Indication: NON-HODGKIN'S LYMPHOMA
     Dosage: 15 MG/KG, Q3W
     Route: 042
     Dates: start: 20080922
  5. PREDNISONE TAB [Suspect]
     Indication: NON-HODGKIN'S LYMPHOMA
     Dosage: 15 MG/KG, Q3W
     Route: 042
     Dates: start: 20080922
  6. BLINDED RITUXIMAB [Suspect]
     Indication: NON-HODGKIN'S LYMPHOMA
     Dosage: 15 MG/KG, Q3W
     Route: 042
     Dates: start: 20080922
  7. VINCRISTINE [Suspect]
     Indication: NON-HODGKIN'S LYMPHOMA
     Dosage: 15 MG/KG, Q3W
     Route: 042
     Dates: start: 20080922
  8. RITUXIMAB [Suspect]
     Indication: NON-HODGKIN'S LYMPHOMA
     Dosage: 375 MG/M2, Q3W
     Route: 042
     Dates: start: 20080923
  9. CYCLOPHOSPHAMIDE [Suspect]
     Indication: NON-HODGKIN'S LYMPHOMA
     Dosage: 750 MG/M2, Q3W
     Route: 042
     Dates: start: 20080923
  10. VINCRISTINE [Suspect]
     Indication: NON-HODGKIN'S LYMPHOMA
     Dosage: 1 MG/M2, Q3W
     Route: 042
     Dates: start: 20080923
  11. ADRIAMYCIN PFS [Suspect]
     Indication: NON-HODGKIN'S LYMPHOMA
     Dosage: 45 MG/M2, Q3W
     Route: 042
     Dates: start: 20080923
  12. PREDNISONE [Suspect]
     Indication: NON-HODGKIN'S LYMPHOMA
     Dosage: 60 MG/M2, Q3W
     Route: 048
     Dates: start: 20080923
  13. OMEPRAZOLE [Concomitant]
     Indication: DRUG USE FOR UNKNOWN INDICATION
     Dosage: UNK
     Dates: start: 20090217
  14. SULFAMETHOXAZOLE ET TRIMETHOPRIME [Concomitant]
     Indication: DRUG USE FOR UNKNOWN INDICATION
     Dosage: UNK
     Dates: start: 20090217, end: 20090224
  15. ITRACONAZOLE [Concomitant]
     Indication: DRUG USE FOR UNKNOWN INDICATION
     Dosage: UNK
     Dates: start: 20090217, end: 20090224

REACTIONS (1)
  - FEBRILE NEUTROPENIA [None]
